FAERS Safety Report 13034206 (Version 13)
Quarter: 2017Q4

REPORT INFORMATION
  Report Type: Report from Study
  Country: US (occurrence: US)
  Receive Date: 20161216
  Receipt Date: 20171121
  Transmission Date: 20180320
  Serious: Yes (Hospitalization)
  Sender: FDA-Public Use
  Company Number: US-JNJFOC-20150912829

PATIENT
  Age: 80 Year
  Sex: Female

DRUGS (43)
  1. VITAMIN B COMPLEX [Concomitant]
     Active Substance: CYANOCOBALAMIN\DEXPANTHENOL\NIACINAMIDE\PYRIDOXINE HYDROCHLORIDE\RIBOFLAVIN 5^-PHOSPHATE SODIUM\THIAMINE HYDROCHLORIDE\VITAMIN B COMPLEX
  2. APPLE CIDER VINEGAR PLUS CHROMIUM [Concomitant]
     Indication: URINARY TRACT INFECTION
  3. DETROL [Concomitant]
     Active Substance: TOLTERODINE TARTRATE
  4. COLECALCIFEROL [Concomitant]
     Active Substance: CHOLECALCIFEROL
  5. ENALAPRIL MALEATE W/HYDROCHLOROTHIAZIDE [Concomitant]
  6. PURE BAKING SODA [Concomitant]
     Active Substance: SODIUM BICARBONATE
     Indication: URINARY TRACT INFECTION
  7. IRON [Concomitant]
     Active Substance: IRON
  8. ALENDRONATE [Concomitant]
     Active Substance: ALENDRONATE SODIUM
  9. CURCUMA LONGA [Concomitant]
     Active Substance: HERBALS\TURMERIC
  10. OXYBUTYNIN CHLORIDE. [Concomitant]
     Active Substance: OXYBUTYNIN CHLORIDE
  11. PROTONIX [Concomitant]
     Active Substance: PANTOPRAZOLE SODIUM
  12. IMBRUVICA [Suspect]
     Active Substance: IBRUTINIB
     Indication: CHRONIC MYELOID LEUKAEMIA
     Route: 048
     Dates: start: 20150312
  13. LASIX [Suspect]
     Active Substance: FUROSEMIDE
     Indication: PRODUCT USED FOR UNKNOWN INDICATION
     Route: 065
  14. CIPRO [Concomitant]
     Active Substance: CIPROFLOXACIN HYDROCHLORIDE
  15. MULTIVITAMIN WITH FLUORIDE [Concomitant]
     Active Substance: .ALPHA.-TOCOPHEROL\.ALPHA.-TOCOPHEROL ACETATE\.ALPHA.-TOCOPHEROL ACETATE, DL-\ASCORBIC ACID\CHOLECALCIFEROL\COBALAMIN\CYANOCOBALAMIN\FLUORIDE ION\FOLIC ACID\NIACIN\NIACINAMIDE\PYRIDOXINE\PYRIDOXINE HYDROCHLORIDE\RIBOFLAVIN\SODIUM ASCORBATE\SODIUM FLUORIDE\THIAMINE\THIAMINE MONONITRATE\VITAMIN A\VITA
  16. MULTIVITAMINS [Concomitant]
     Active Substance: VITAMINS
  17. CYANOCOBALAMIN. [Concomitant]
     Active Substance: CYANOCOBALAMIN
  18. LYRICA [Concomitant]
     Active Substance: PREGABALIN
  19. GINKGO [Concomitant]
     Active Substance: GINKGO
  20. VITAMIN C [Concomitant]
     Active Substance: ASCORBIC ACID
  21. ELEUTHEROCOCCUS SENTICOSUS [Concomitant]
     Active Substance: ELEUTHERO
  22. VITAMIN D [Concomitant]
     Active Substance: CHOLECALCIFEROL
  23. GABAPENTIN. [Concomitant]
     Active Substance: GABAPENTIN
  24. COCONUT OIL [Concomitant]
     Active Substance: COCONUT OIL
  25. MELALEUCA ALTERNIFOLIA OIL [Concomitant]
  26. TRIAMCINOLONE [Concomitant]
     Active Substance: TRIAMCINOLONE
  27. IMBRUVICA [Suspect]
     Active Substance: IBRUTINIB
     Indication: CHRONIC MYELOID LEUKAEMIA
     Route: 048
     Dates: start: 20161018
  28. IMBRUVICA [Suspect]
     Active Substance: IBRUTINIB
     Indication: CHRONIC LYMPHOCYTIC LEUKAEMIA
     Route: 048
     Dates: start: 20150312
  29. MAGNESIUM [Concomitant]
     Active Substance: MAGNESIUM
  30. OLEA EUROPAEA LEAF EXTRACT [Concomitant]
     Active Substance: HERBALS
  31. SALMO SALAR OIL [Concomitant]
     Active Substance: ATLANTIC SALMON OIL
  32. FENUGREEK [Concomitant]
     Active Substance: FENUGREEK SEED
  33. ASPIRIN. [Concomitant]
     Active Substance: ASPIRIN
  34. IMBRUVICA [Suspect]
     Active Substance: IBRUTINIB
     Indication: CHRONIC MYELOID LEUKAEMIA
     Route: 048
     Dates: start: 20141018
  35. IMBRUVICA [Suspect]
     Active Substance: IBRUTINIB
     Indication: CHRONIC LYMPHOCYTIC LEUKAEMIA
     Route: 048
     Dates: start: 20141018
  36. IMBRUVICA [Suspect]
     Active Substance: IBRUTINIB
     Indication: CHRONIC LYMPHOCYTIC LEUKAEMIA
     Route: 048
     Dates: start: 20161018
  37. FOLIC ACID. [Concomitant]
     Active Substance: FOLIC ACID
  38. DHEA [Concomitant]
     Active Substance: PRASTERONE
  39. CALCIUM [Concomitant]
     Active Substance: CALCIUM
  40. VITAMIN B [Concomitant]
     Active Substance: VITAMIN B
  41. LEVOTHYROXINE SODIUM. [Concomitant]
     Active Substance: LEVOTHYROXINE SODIUM
  42. IRON SULFATE [Concomitant]
     Active Substance: FERROUS SULFATE ANHYDROUS
     Dosage: 325 UNK, UNK
  43. OAK BARK EXTRACT [Concomitant]
     Active Substance: OAK BARK EXTRACT

REACTIONS (66)
  - Cardiac murmur [Unknown]
  - Fall [Unknown]
  - Hair growth abnormal [Unknown]
  - Vomiting [Unknown]
  - Cough [Not Recovered/Not Resolved]
  - Blood blister [Unknown]
  - Arthralgia [Not Recovered/Not Resolved]
  - Wound infection [Unknown]
  - Muscle disorder [Unknown]
  - Sensitivity of teeth [Unknown]
  - Skin burning sensation [Unknown]
  - Product use in unapproved indication [Unknown]
  - Tinea pedis [Unknown]
  - Malaise [Unknown]
  - Fatigue [Unknown]
  - Skin disorder [Unknown]
  - Cataract [Unknown]
  - Impaired healing [Unknown]
  - Nasal dryness [Unknown]
  - Nasal ulcer [Recovering/Resolving]
  - Oral pain [Unknown]
  - Dehydration [Unknown]
  - Musculoskeletal pain [Unknown]
  - Blister [Recovering/Resolving]
  - Eczema [Recovering/Resolving]
  - Somnolence [Unknown]
  - Paraesthesia [Not Recovered/Not Resolved]
  - Musculoskeletal stiffness [Unknown]
  - Dysuria [Recovered/Resolved]
  - Vision blurred [Unknown]
  - Peripheral swelling [Not Recovered/Not Resolved]
  - Rash [Recovering/Resolving]
  - Fungal infection [Unknown]
  - Balance disorder [Unknown]
  - Skin ulcer [Recovering/Resolving]
  - Sleep disorder [Unknown]
  - Dry mouth [Not Recovered/Not Resolved]
  - Sneezing [Unknown]
  - Acne [Unknown]
  - Pruritus [Unknown]
  - Localised infection [Unknown]
  - Coordination abnormal [Unknown]
  - Glossodynia [Unknown]
  - Memory impairment [Unknown]
  - Dry skin [Unknown]
  - Urethral spasm [Unknown]
  - Tooth fracture [Unknown]
  - Hair texture abnormal [Unknown]
  - Nausea [Unknown]
  - Joint swelling [Not Recovered/Not Resolved]
  - Pain in extremity [Recovering/Resolving]
  - Neck pain [Not Recovered/Not Resolved]
  - Dyspepsia [Unknown]
  - Throat irritation [Unknown]
  - Dysgeusia [Unknown]
  - Off label use [Unknown]
  - Muscle spasms [Unknown]
  - Lip pain [Unknown]
  - Decreased appetite [Unknown]
  - Hyponatraemia [Recovered/Resolved]
  - Urinary tract infection [Not Recovered/Not Resolved]
  - Oral discomfort [Unknown]
  - Chest pain [Unknown]
  - Eczema infected [Unknown]
  - Cystitis [Recovered/Resolved]
  - Mouth ulceration [Unknown]

NARRATIVE: CASE EVENT DATE: 201410
